FAERS Safety Report 5430588-3 (Version None)
Quarter: 2007Q3

REPORT INFORMATION
  Report Type: 
  Country: None (occurrence: None)
  Receive Date: 20070828
  Receipt Date: 20070814
  Transmission Date: 20080115
  Serious: Yes (Other)
  Sender: FDA-Public Use
  Company Number: 02100-EUR-07-0115

PATIENT
  Age: 79 Year
  Sex: Male

DRUGS (3)
  1. CILOSTAZOL [Suspect]
     Indication: ARTERIAL OCCLUSIVE DISEASE
     Dosage: 200 MG ORAL
     Route: 048
     Dates: start: 20070520
  2. METOPROLOL SUCCINATE [Concomitant]
  3. OLMESARTAN MEDOXOMIL [Concomitant]

REACTIONS (2)
  - HYPERTENSIVE CRISIS [None]
  - TINNITUS [None]
